FAERS Safety Report 24217846 (Version 1)
Quarter: 2024Q3

REPORT INFORMATION
  Report Type: Spontaneous
  Country: US (occurrence: None)
  Receive Date: 20240815
  Receipt Date: 20240815
  Transmission Date: 20241017
  Serious: Yes (Death)
  Sender: Public
  Company Number: None

PATIENT
  Age: 78 Year
  Sex: Female
  Weight: 70.11 kg

DRUGS (22)
  1. REVLIMID [Suspect]
     Active Substance: LENALIDOMIDE
     Indication: Follicular lymphoma stage I
     Dosage: 1 TOT- TOTAL DAILY ORAL
     Route: 048
     Dates: start: 20240618
  2. ACYCLOVIR [Concomitant]
     Active Substance: ACYCLOVIR
  3. ALLOPURINOL [Concomitant]
     Active Substance: ALLOPURINOL
  4. B Complex 1.7 mg-20 mg-2 mg-1.2 mg/mL sublingual liquid [Concomitant]
  5. betamethasone valerate 0.1 % lotion [Concomitant]
  6. biotin 300 mcg tablet [Concomitant]
  7. calcium 1200 mg [Concomitant]
  8. Citrucel 500 mg tablet [Concomitant]
  9. Claritin 10 mg tablet [Concomitant]
  10. clotrimazole 1 % topical solution [Concomitant]
  11. Colace 100 mg capsule [Concomitant]
  12. cyanocobalamin (vit B-12) 1,000 mcg tablet [Concomitant]
  13. Dymista 137 mcg-50 mcg/spray nasal spray [Concomitant]
  14. hydrocodone 5 mg-acetaminophen 325 mg tablet [Concomitant]
  15. Iron and black strap molasses [Concomitant]
  16. LORAZEPAM [Concomitant]
     Active Substance: LORAZEPAM
  17. melatonin 5 mg capsule [Concomitant]
  18. Myrbetriq 25 mg tablet,extended release [Concomitant]
  19. multivitamin oral [Concomitant]
  20. PANTOPRAZOLE SODIUM [Concomitant]
     Active Substance: PANTOPRAZOLE SODIUM
  21. Premarin 0.625 mg/gram vaginal cream [Concomitant]
  22. PreserVision AREDS 2,148 mcg-113 mg-45 mg-17.4 mg tablet [Concomitant]

REACTIONS (1)
  - Death [None]

NARRATIVE: CASE EVENT DATE: 20240725
